FAERS Safety Report 4707936-2 (Version None)
Quarter: 2005Q2

REPORT INFORMATION
  Report Type: 
  Country: None (occurrence: None)
  Receive Date: 20050629
  Receipt Date: 20050321
  Transmission Date: 20051028
  Serious: No
  Sender: FDA-Public Use
  Company Number: 05P-163-0294655

PATIENT
  Age: 44 Year
  Sex: Female
  Weight: 71.6683 kg

DRUGS (5)
  1. HUMIRA [Suspect]
     Indication: RHEUMATOID ARTHRITIS
     Dosage: 40 MG, 1 IN 2 WK, SUBCUTANEOUS
     Route: 058
     Dates: start: 20050126, end: 20050204
  2. HYDROXYCHLOROQUINE PHOSPHATE [Concomitant]
  3. PROPRANOLOL HYDROCHLOQUINE [Concomitant]
  4. MULTI-VITAMINS [Concomitant]
  5. ZOLPIDEM TARTRATE [Concomitant]

REACTIONS (6)
  - DECREASED APPETITE [None]
  - DYSPNOEA [None]
  - DYSURIA [None]
  - FEELING JITTERY [None]
  - INFLUENZA [None]
  - INSOMNIA [None]
